FAERS Safety Report 19215366 (Version 2)
Quarter: 2021Q2

REPORT INFORMATION
  Report Type: Report from Study
  Country: None (occurrence: ES)
  Receive Date: 20210504
  Receipt Date: 20210519
  Transmission Date: 20210717
  Serious: Yes (Other)
  Sender: FDA-Public Use
  Company Number: ES-ABBVIE-21K-144-3890100-00

PATIENT
  Age: 74 Year
  Sex: Male

DRUGS (1)
  1. IMBRUVICA [Suspect]
     Active Substance: IBRUTINIB
     Indication: CHRONIC LYMPHOCYTIC LEUKAEMIA
     Route: 048
     Dates: start: 20181229, end: 20210511

REACTIONS (2)
  - Prostatic operation [Recovering/Resolving]
  - Colon operation [Recovered/Resolved with Sequelae]

NARRATIVE: CASE EVENT DATE: 20210426
